FAERS Safety Report 6017017-6 (Version None)
Quarter: 2008Q4

REPORT INFORMATION
  Report Type: 
  Country: None (occurrence: None)
  Receive Date: 20081223
  Receipt Date: 20081208
  Transmission Date: 20090506
  Serious: Yes (Other)
  Sender: FDA-Public Use
  Company Number: CN-ROCHE-602057

PATIENT

DRUGS (2)
  1. CAPECITABINE [Suspect]
     Indication: GASTRIC CANCER
     Dosage: TAKEN 2 TIMES PER DAY ON DAY 1 TO DAY10, RECEIVED EVERY 2 WEEKS
     Route: 065
  2. OXALIPLATIN [Suspect]
     Indication: GASTRIC CANCER
     Dosage: TAKEN FOR 2 HOURS ON DAY 1 EVERY 2 WEEKS
     Route: 041

REACTIONS (1)
  - GASTRIC CANCER [None]
